FAERS Safety Report 5090648-6 (Version None)
Quarter: 2006Q3

REPORT INFORMATION
  Report Type: 
  Country: None (occurrence: None)
  Receive Date: 20060828
  Receipt Date: 20060816
  Transmission Date: 20061208
  Serious: Yes (Hospitalization)
  Sender: FDA-Public Use
  Company Number: GB-BRISTOL-MYERS SQUIBB COMPANY-13478920

PATIENT
  Age: 22 Year
  Sex: Female
  Weight: 60 kg

DRUGS (1)
  1. KENALOG-40 [Suspect]
     Indication: SEASONAL ALLERGY
     Route: 030
     Dates: start: 20060511, end: 20060511

REACTIONS (1)
  - INJECTION SITE SCAR [None]
